FAERS Safety Report 13703137 (Version 1)
Quarter: 2017Q2

REPORT INFORMATION
  Report Type: Report from Study
  Country: FR (occurrence: FR)
  Receive Date: 20170629
  Receipt Date: 20170629
  Transmission Date: 20170830
  Serious: Yes (Other)
  Sender: FDA-Public Use
  Company Number: PHHY2017FR095868

PATIENT
  Age: 63 Year
  Sex: Female

DRUGS (5)
  1. SIGNIFOR LAR [Suspect]
     Active Substance: PASIREOTIDE
     Indication: ACROMEGALY
     Route: 065
  2. LYSANXIA [Concomitant]
     Active Substance: PRAZEPAM
     Indication: STRESS
     Dosage: 40 MG, UNK
     Route: 048
     Dates: start: 20080627, end: 20170524
  3. ROTIGOTINE [Concomitant]
     Active Substance: ROTIGOTINE
     Indication: RESTLESS LEGS SYNDROME
     Dosage: 2 MG, UNK
     Route: 062
     Dates: start: 20160302, end: 20170524
  4. ROPINIROLE. [Concomitant]
     Active Substance: ROPINIROLE
     Indication: RESTLESS LEGS SYNDROME
     Dosage: 0.75 MG, UNK
     Route: 048
     Dates: start: 20120924, end: 20170524
  5. LEVOTHYROX [Concomitant]
     Active Substance: LEVOTHYROXINE
     Indication: HYPOTHYROIDISM
     Dosage: 75 UG, UNK
     Route: 048
     Dates: start: 20060529, end: 20170523

REACTIONS (6)
  - Diabetes mellitus [Not Recovered/Not Resolved]
  - Constipation [Unknown]
  - Abdominal pain upper [Unknown]
  - Insomnia [Unknown]
  - Vertigo [Unknown]
  - Muscle spasms [Unknown]

NARRATIVE: CASE EVENT DATE: 20170220
